FAERS Safety Report 4711100-0 (Version None)
Quarter: 2005Q3

REPORT INFORMATION
  Report Type: 
  Country: None (occurrence: None)
  Receive Date: 20050711
  Receipt Date: 20050628
  Transmission Date: 20060218
  Serious: Yes (Hospitalization)
  Sender: FDA-Public Use
  Company Number: 200511659EU

PATIENT
  Age: 65 Year
  Sex: Male

DRUGS (2)
  1. NATRILIX [Suspect]
     Indication: ESSENTIAL HYPERTENSION
     Route: 048
     Dates: start: 20050101
  2. PEPTAZOL [Suspect]
     Indication: GASTRITIS
     Route: 048
     Dates: start: 20050101, end: 20050529

REACTIONS (1)
  - PARAESTHESIA [None]
